FAERS Safety Report 5540628-9 (Version None)
Quarter: 2007Q4

REPORT INFORMATION
  Report Type: 
  Country: None (occurrence: None)
  Receive Date: 20071129
  Receipt Date: 20070515
  Transmission Date: 20080405
  Serious: Yes (Hospitalization, Other)
  Sender: FDA-Public Use
  Company Number: US200703002453

PATIENT
  Age: 43 Year
  Sex: Female
  Weight: 79.4 kg

DRUGS (2)
  1. ZYPREXA [Suspect]
     Dosage: 7.5 MG,
     Dates: start: 19960101, end: 19970101
  2. BUPROPION HCL [Concomitant]

REACTIONS (3)
  - DIABETES MELLITUS [None]
  - DIABETIC KETOACIDOSIS [None]
  - HYPERTENSION [None]
